FAERS Safety Report 6297734-3 (Version None)
Quarter: 2009Q3

REPORT INFORMATION
  Report Type: 
  Country: None (occurrence: None)
  Receive Date: 20090804
  Receipt Date: 20090804
  Transmission Date: 20100115
  Serious: Yes (Other)
  Sender: FDA-Public Use
  Company Number: None

PATIENT
  Age: 62 Year
  Sex: Male
  Weight: 88.4514 kg

DRUGS (1)
  1. LOVENOX [Suspect]
     Indication: POST PROCEDURAL COMPLICATION
     Dosage: DAILY
     Dates: start: 20090505, end: 20090528

REACTIONS (6)
  - IMPAIRED HEALING [None]
  - OEDEMA PERIPHERAL [None]
  - POST PROCEDURAL SWELLING [None]
  - SCAR [None]
  - SWELLING [None]
  - WOUND HAEMORRHAGE [None]
